FAERS Safety Report 9773664 (Version 1)
Quarter: 2013Q4

REPORT INFORMATION
  Report Type: Spontaneous
  Country: US (occurrence: US)
  Receive Date: 20131219
  Receipt Date: 20131219
  Transmission Date: 20140711
  Serious: Yes (Other)
  Sender: FDA-Public Use
  Company Number: US-BAXTER-2013BAX049928

PATIENT
  Age: 65 Year
  Sex: Female

DRUGS (6)
  1. GAMMAGARD LIQUID [Suspect]
     Indication: MUSCULOSKELETAL STIFFNESS
     Route: 042
  2. GAMMAGARD LIQUID [Suspect]
     Indication: OFF LABEL USE
  3. GABAPENTIN [Suspect]
     Indication: MUSCULOSKELETAL STIFFNESS
     Route: 065
  4. OXYCONTIN [Suspect]
     Indication: MUSCULOSKELETAL STIFFNESS
     Route: 065
  5. VALIUM [Suspect]
     Indication: MUSCULOSKELETAL STIFFNESS
     Route: 065
  6. BACLOFEN [Suspect]
     Indication: MUSCULOSKELETAL STIFFNESS
     Route: 065

REACTIONS (1)
  - Disease progression [Unknown]
